FAERS Safety Report 12591692 (Version 1)
Quarter: 2016Q3

REPORT INFORMATION
  Report Type: Spontaneous
  Country: US (occurrence: None)
  Receive Date: 20160725
  Receipt Date: 20160725
  Transmission Date: 20161109
  Serious: Yes (Disabling)
  Sender: FDA-Public Use
  Company Number: None

PATIENT
  Age: 58 Year
  Sex: Female
  Weight: 61.24 kg

DRUGS (8)
  1. VITAMIN C [Concomitant]
     Active Substance: ASCORBIC ACID
  2. LORATADINE. [Concomitant]
     Active Substance: LORATADINE
  3. PROAIR INHALER [Concomitant]
  4. MULTI-VITAMIN [Concomitant]
     Active Substance: .ALPHA.-TOCOPHEROL ACETATE, DL-\ASCORBIC ACID\CYANOCOBALAMIN\FLUORIDE ION\FOLIC ACID\NIACIN\PYRIDOXINE\RIBOFLAVIN\THIAMINE\VITAMIN A\VITAMIN D
  5. DULERA [Suspect]
     Active Substance: FORMOTEROL FUMARATE DIHYDRATE\MOMETASONE FUROATE
     Indication: ASTHMA
     Route: 055
     Dates: start: 20160601, end: 20160630
  6. QUERCITIN [Concomitant]
  7. PROBIOTICS [Concomitant]
     Active Substance: PROBIOTICS NOS
  8. MAGNESIUM TAURATE [Concomitant]

REACTIONS (13)
  - Muscle twitching [None]
  - Anxiety [None]
  - Agitation [None]
  - Dizziness [None]
  - Nasal congestion [None]
  - Depression [None]
  - Blood potassium decreased [None]
  - Muscular weakness [None]
  - Muscle spasms [None]
  - Gait disturbance [None]
  - Insomnia [None]
  - Upper respiratory tract congestion [None]
  - Fatigue [None]

NARRATIVE: CASE EVENT DATE: 20160630
